FAERS Safety Report 7773810-0 (Version None)
Quarter: 2011Q3

REPORT INFORMATION
  Report Type: 
  Country: None (occurrence: None)
  Receive Date: 20110923
  Receipt Date: 20110913
  Transmission Date: 20111222
  Serious: Yes (Other)
  Sender: FDA-Public Use
  Company Number: US-JNJFOC-20110906429

PATIENT
  Sex: Female

DRUGS (2)
  1. DURAGESIC-100 [Suspect]
     Indication: PAIN IN EXTREMITY
     Dosage: 100-200UG/HR 1 TO 2 PATCHES
     Route: 062
     Dates: start: 20110701
  2. SENNA [Concomitant]
     Indication: LAXATIVE SUPPORTIVE CARE
     Route: 048

REACTIONS (12)
  - GASTROINTESTINAL MOTILITY DISORDER [None]
  - SENSORY LOSS [None]
  - HYPERHIDROSIS [None]
  - WRONG TECHNIQUE IN DRUG USAGE PROCESS [None]
  - DEAFNESS [None]
  - VISUAL IMPAIRMENT [None]
  - CONSTIPATION [None]
  - INFREQUENT BOWEL MOVEMENTS [None]
  - BOWEL MOVEMENT IRREGULARITY [None]
  - ADVERSE EVENT [None]
  - DRUG ADMINISTERED AT INAPPROPRIATE SITE [None]
  - PAIN [None]
